FAERS Safety Report 20027690 (Version 1)
Quarter: 2021Q4

REPORT INFORMATION
  Report Type: Spontaneous
  Country: PT (occurrence: PT)
  Receive Date: 20211103
  Receipt Date: 20211103
  Transmission Date: 20220304
  Serious: Yes (Other)
  Sender: FDA-Public Use
  Company Number: PT-AMGEN-PRTSP2021160475

PATIENT
  Age: 70 Year
  Sex: Male

DRUGS (1)
  1. VECTIBIX [Suspect]
     Active Substance: PANITUMUMAB
     Indication: Colorectal cancer metastatic
     Dosage: UNK
     Route: 065
     Dates: start: 20210707, end: 20211013

REACTIONS (4)
  - Colorectal cancer metastatic [Unknown]
  - Skin toxicity [Not Recovered/Not Resolved]
  - Hypersensitivity [Unknown]
  - Eye allergy [Unknown]

NARRATIVE: CASE EVENT DATE: 20210929
